FAERS Safety Report 7875361-1 (Version None)
Quarter: 2011Q4

REPORT INFORMATION
  Report Type: 
  Country: None (occurrence: None)
  Receive Date: 20111031
  Receipt Date: 20111019
  Transmission Date: 20120403
  Serious: Yes (Congenital Anomaly)
  Sender: FDA-Public Use
  Company Number: US-GLAXOSMITHKLINE-A0951257A

PATIENT
  Sex: Male

DRUGS (1)
  1. PAXIL CR [Suspect]
     Indication: DEPRESSION
     Dosage: 25MG AT NIGHT
     Route: 064
     Dates: start: 20030506

REACTIONS (2)
  - FALLOT'S TETRALOGY [None]
  - MATERNAL EXPOSURE DURING PREGNANCY [None]
